FAERS Safety Report 13321211 (Version 12)
Quarter: 2017Q4

REPORT INFORMATION
  Report Type: Spontaneous
  Country: US (occurrence: US)
  Receive Date: 20170309
  Receipt Date: 20171026
  Transmission Date: 20180320
  Serious: Yes (Congenital Anomaly, Other)
  Sender: FDA-Public Use
  Company Number: PHEH2017US006782

PATIENT
  Sex: Male

DRUGS (2)
  1. ZOFRAN [Suspect]
     Active Substance: ONDANSETRON HYDROCHLORIDE
     Indication: FOETAL EXPOSURE DURING PREGNANCY
     Route: 064
  2. ONDANSETRON. [Suspect]
     Active Substance: ONDANSETRON
     Indication: FOETAL EXPOSURE DURING PREGNANCY
     Dosage: MOTHER DOSE: 04 MG, Q6H
     Route: 064

REACTIONS (12)
  - Craniosynostosis [Unknown]
  - Skull malformation [Unknown]
  - Eczema nummular [Unknown]
  - Rhinitis [Unknown]
  - Hypospadias [Unknown]
  - Dysmorphism [Unknown]
  - Phimosis [Recovered/Resolved]
  - Scaphocephaly [Unknown]
  - Foetal exposure during pregnancy [Unknown]
  - Injury [Unknown]
  - Pyrexia [Unknown]
  - Upper respiratory tract infection [Unknown]
